FAERS Safety Report 9687215 (Version 1)
Quarter: 2013Q4

REPORT INFORMATION
  Report Type: Spontaneous
  Country: KR (occurrence: KR)
  Receive Date: 20131113
  Receipt Date: 20131113
  Transmission Date: 20140711
  Serious: Yes (Hospitalization)
  Sender: FDA-Public Use
  Company Number: KR-MYLANLABS-2013S1024791

PATIENT
  Age: 47 Year
  Sex: Female

DRUGS (3)
  1. AMLODIPINE [Suspect]
     Indication: INTENTIONAL OVERDOSE
     Route: 048
  2. NICORANDIL [Suspect]
     Indication: INTENTIONAL OVERDOSE
     Route: 048
  3. ISOSORBIDE DINITRATE [Suspect]
     Indication: INTENTIONAL OVERDOSE
     Route: 048

REACTIONS (4)
  - Hypotension [Recovered/Resolved]
  - Intentional overdose [Recovered/Resolved]
  - Sinus bradycardia [Recovered/Resolved]
  - Suicide attempt [Recovered/Resolved]
